FAERS Safety Report 23136633 (Version 1)
Quarter: 2023Q4

REPORT INFORMATION
  Report Type: Spontaneous
  Country: US (occurrence: US)
  Receive Date: 20231102
  Receipt Date: 20231102
  Transmission Date: 20240110
  Serious: No
  Sender: FDA-Public Use
  Company Number: US-OYSTER POINT PHARMA, INC-US-OYS-23-000826

PATIENT
  Age: 43 Year
  Sex: Female

DRUGS (1)
  1. TYRVAYA [Suspect]
     Active Substance: VARENICLINE TARTRATE
     Indication: Dry eye
     Dosage: UNK, BID
     Route: 045
     Dates: start: 20230711, end: 20230715

REACTIONS (4)
  - Pruritus [Unknown]
  - Cough [Recovered/Resolved]
  - Sneezing [Recovered/Resolved]
  - Therapy cessation [Unknown]

NARRATIVE: CASE EVENT DATE: 20230701
